FAERS Safety Report 5285969-8 (Version None)
Quarter: 2007Q1

REPORT INFORMATION
  Report Type: 
  Country: None (occurrence: None)
  Receive Date: 20070328
  Receipt Date: 20070301
  Transmission Date: 20070707
  Serious: Yes (Hospitalization, Other)
  Sender: FDA-Public Use
  Company Number: 2007PV031089

PATIENT
  Age: 50 Year
  Sex: Male

DRUGS (10)
  1. BYETTA [Suspect]
     Indication: DIABETES MELLITUS NON-INSULIN-DEPENDENT
     Dosage: 10 MCG;BID;SC
     Route: 058
     Dates: start: 20061223
  2. METFORMIN [Concomitant]
  3. LISINOPRIL [Concomitant]
  4. GLIPIZIDE [Concomitant]
  5. CANDESARTAN [Concomitant]
  6. CLONIDINE [Concomitant]
  7. LASIX [Concomitant]
  8. ATENOLOL [Concomitant]
  9. POTASSIUM ACETATE [Concomitant]
  10. CARDIZEM CD [Concomitant]

REACTIONS (7)
  - ACCELERATED HYPERTENSION [None]
  - ADRENAL MASS [None]
  - ASTHENIA [None]
  - DECREASED APPETITE [None]
  - DIABETES MELLITUS INADEQUATE CONTROL [None]
  - PANCREATITIS ACUTE [None]
  - WEIGHT DECREASED [None]
